FAERS Safety Report 7732915-0 (Version None)
Quarter: 2011Q3

REPORT INFORMATION
  Report Type: 
  Country: None (occurrence: None)
  Receive Date: 20110907
  Receipt Date: 20110826
  Transmission Date: 20111222
  Serious: Yes (Hospitalization)
  Sender: FDA-Public Use
  Company Number: PHHY2011IT78919

PATIENT
  Sex: Female

DRUGS (4)
  1. CAFERGOT [Suspect]
     Indication: MIGRAINE
     Dosage: 2 UNIT DOSAGE
     Route: 054
     Dates: start: 20110527, end: 20110527
  2. INDOMETHACIN [Suspect]
     Indication: MIGRAINE
     Dosage: 1 DF, UNK
     Route: 048
     Dates: start: 20110526, end: 20110526
  3. LEXOTAN [Suspect]
     Indication: INSOMNIA
     Dosage: 6 ML,
     Route: 048
     Dates: start: 20110527, end: 20110527
  4. CLONAZEPAM [Suspect]
     Indication: MIGRAINE
     Dosage: 17 UNITS DOSAGE
     Route: 048
     Dates: start: 20110526, end: 20110527

REACTIONS (4)
  - DEPRESSED LEVEL OF CONSCIOUSNESS [None]
  - VOMITING [None]
  - DEHYDRATION [None]
  - HYPOTENSION [None]
